FAERS Safety Report 8474922-9 (Version None)
Quarter: 2012Q2

REPORT INFORMATION
  Report Type: 
  Country: None (occurrence: None)
  Receive Date: 20120628
  Receipt Date: 20120615
  Transmission Date: 20120825
  Serious: Yes (Other)
  Sender: FDA-Public Use
  Company Number: ES-JNJFOC-20120609016

PATIENT
  Age: 72 Year
  Sex: Male

DRUGS (3)
  1. FOLIC ACID [Concomitant]
  2. INFLIXIMAB, RECOMBINANT [Suspect]
     Indication: RHEUMATOID ARTHRITIS
     Dosage: DOSE REPORTED AS ^3^
     Route: 042
     Dates: start: 20021213
  3. OMEPRAZOLE [Concomitant]

REACTIONS (1)
  - MALIGNANT FIBROUS HISTIOCYTOMA NON-METASTATIC [None]
